FAERS Safety Report 9305500 (Version 1)
Quarter: 2013Q2

REPORT INFORMATION
  Report Type: Spontaneous
  Country: NL (occurrence: NL)
  Receive Date: 20130523
  Receipt Date: 20130523
  Transmission Date: 20140414
  Serious: Yes (Death)
  Sender: FDA-Public Use
  Company Number: NL-AMGEN-NLDSP2013034770

PATIENT
  Age: 66 Year
  Sex: Male

DRUGS (13)
  1. XGEVA [Suspect]
     Indication: BONE DISORDER
     Dosage: UNK UNK, Q4WK
     Route: 058
     Dates: start: 20121103
  2. PRIMPERAN [Concomitant]
     Dosage: 20 MG, UNK
  3. METOCLOPRAM [Concomitant]
  4. PANTOPRAZOL [Concomitant]
     Dosage: 40 MG, UNK
  5. ISOSORB MONO [Concomitant]
     Dosage: 25 MG, UNK
  6. METOPROLOL [Concomitant]
     Dosage: 25 UNK, UNK
  7. FUROSEMIDE [Concomitant]
     Dosage: 20 MG, UNK
  8. ENALAPRIL MALEATE [Concomitant]
  9. AMLODIPINE [Concomitant]
     Dosage: 5 MG, UNK
  10. ACETYLSALICYLIC ACID [Concomitant]
     Dosage: 80 MG, UNK
  11. SPIRIVA [Concomitant]
     Dosage: 18 MUG, UNK
  12. CLOPIDOGREL [Concomitant]
     Dosage: 75 MG, UNK
  13. SIMVASTATIN [Concomitant]
     Dosage: 40 MG, UNK

REACTIONS (1)
  - Death [Fatal]
